FAERS Safety Report 7508028-X (Version None)
Quarter: 2011Q2

REPORT INFORMATION
  Report Type: 
  Country: None (occurrence: None)
  Receive Date: 20110527
  Receipt Date: 20110517
  Transmission Date: 20111010
  Serious: Yes (Hospitalization, Other)
  Sender: FDA-Public Use
  Company Number: US-ELI_LILLY_AND_COMPANY-US201007005848

PATIENT
  Sex: Female

DRUGS (5)
  1. FORTEO [Suspect]
     Dosage: 20 UG, QD
  2. MULTI-VITAMIN [Concomitant]
  3. FORTEO [Suspect]
     Indication: OSTEOPOROSIS
     Dosage: 20 UG, DAILY (1/D)
     Dates: start: 20100618
  4. FORTEO [Suspect]
     Dosage: 20 UG, DAILY (1/D)
  5. VITAMIN D [Concomitant]

REACTIONS (6)
  - HAND FRACTURE [None]
  - TIBIA FRACTURE [None]
  - MUSCLE SPASMS [None]
  - FALL [None]
  - INJECTION SITE HAEMATOMA [None]
  - BLOOD CALCIUM INCREASED [None]
